FAERS Safety Report 6934945-5 (Version None)
Quarter: 2010Q3

REPORT INFORMATION
  Report Type: 
  Country: None (occurrence: None)
  Receive Date: 20100821
  Receipt Date: 20100812
  Transmission Date: 20110219
  Serious: Yes (Other)
  Sender: FDA-Public Use
  Company Number: CHPA2010GB12975

PATIENT

DRUGS (1)
  1. LAMISIL AT GEL (NCH) [Suspect]
     Indication: TINEA PEDIS
     Dosage: UNK, UNK
     Route: 061

REACTIONS (3)
  - BLISTER [None]
  - LOCALISED INFECTION [None]
  - PAIN IN EXTREMITY [None]
